FAERS Safety Report 4928911-9 (Version None)
Quarter: 2006Q1

REPORT INFORMATION
  Report Type: 
  Country: None (occurrence: None)
  Receive Date: 20060301
  Receipt Date: 20060221
  Transmission Date: 20060701
  Serious: Yes (Hospitalization)
  Sender: FDA-Public Use
  Company Number: JP-JNJFOC-20060205861

PATIENT
  Age: 33 Year
  Sex: Female

DRUGS (2)
  1. CRAVIT [Suspect]
     Indication: ACUTE SINUSITIS
     Route: 048
     Dates: start: 20060213, end: 20060213
  2. MUCODYNE [Concomitant]
     Route: 048

REACTIONS (1)
  - COLITIS ULCERATIVE [None]
